FAERS Safety Report 8095614-4 (Version None)
Quarter: 2012Q1

REPORT INFORMATION
  Report Type: 
  Country: None (occurrence: None)
  Receive Date: 20120129
  Receipt Date: 20111228
  Transmission Date: 20120608
  Serious: No
  Sender: FDA-Public Use
  Company Number: US-ABBOTT-11P-163-0887319-00

PATIENT
  Age: 67 Year
  Sex: Male

DRUGS (15)
  1. PREDNISONE TAB [Concomitant]
     Indication: INFLAMMATION
     Route: 048
  2. NEURONTIN [Concomitant]
  3. VITAMIN B COMPLEX CAP [Concomitant]
     Indication: PRODUCT USED FOR UNKNOWN INDICATION
  4. MULTI-VITAMIN [Concomitant]
     Indication: VITAMIN SUPPLEMENTATION
  5. VITAMIN D [Concomitant]
     Indication: PRODUCT USED FOR UNKNOWN INDICATION
  6. HUMIRA [Suspect]
     Indication: CROHN'S DISEASE
     Dosage: LOADING DOSE
     Dates: start: 20111212, end: 20111212
  7. HUMIRA [Suspect]
     Dates: start: 20111226
  8. CALCIUM [Concomitant]
     Indication: MINERAL SUPPLEMENTATION
  9. COUMADIN [Concomitant]
     Indication: PRODUCT USED FOR UNKNOWN INDICATION
     Dosage: 2 PILLS TUESDAY-SUNDAY, 1 PILL ON MONDAY
  10. MYCOPHENOLATE MOFETIL (CELLCEPT) [Concomitant]
     Indication: PRODUCT USED FOR UNKNOWN INDICATION
  11. PROTONIX [Concomitant]
     Indication: GASTROOESOPHAGEAL REFLUX DISEASE
  12. PROGRAF [Concomitant]
     Indication: PRODUCT USED FOR UNKNOWN INDICATION
  13. SODIUM BICARBONATE [Concomitant]
     Indication: PRODUCT USED FOR UNKNOWN INDICATION
  14. ANTI-REJECTION MEDICATIONS [Concomitant]
     Indication: RENAL TRANSPLANT
  15. NEURONTIN [Concomitant]
     Indication: PARAESTHESIA

REACTIONS (3)
  - FALL [None]
  - OPEN WOUND [None]
  - DYSGEUSIA [None]
